FAERS Safety Report 21296327 (Version 1)
Quarter: 2022Q3

REPORT INFORMATION
  Report Type: Spontaneous
  Country: CH (occurrence: CH)
  Receive Date: 20220906
  Receipt Date: 20220906
  Transmission Date: 20221027
  Serious: Yes (Hospitalization)
  Sender: FDA-Public Use
  Company Number: None

PATIENT
  Age: 59 Year
  Sex: Male

DRUGS (20)
  1. ACTEMRA [Suspect]
     Active Substance: TOCILIZUMAB
     Indication: COVID-19
     Route: 042
     Dates: start: 20220713, end: 20220713
  2. ACTEMRA [Suspect]
     Active Substance: TOCILIZUMAB
     Indication: COVID-19
     Route: 042
     Dates: start: 20220715, end: 20220715
  3. BACTRIM [Suspect]
     Active Substance: SULFAMETHOXAZOLE\TRIMETHOPRIM
     Indication: COVID-19
     Route: 065
     Dates: start: 20220713, end: 20220725
  4. NEXIUM [Suspect]
     Active Substance: ESOMEPRAZOLE MAGNESIUM
     Indication: Upper gastrointestinal haemorrhage
     Dosage: 40 MG 1-2X/J
     Route: 048
     Dates: start: 20220714, end: 20220816
  5. PANTOZOL [Suspect]
     Active Substance: PANTOPRAZOLE SODIUM
     Indication: Upper gastrointestinal haemorrhage
     Dosage: 40 MG 1-2X/J
     Route: 048
     Dates: start: 20220817, end: 20220824
  6. SINTROM [Concomitant]
     Active Substance: ACENOCOUMAROL
     Dosage: AS NECESSARY
     Route: 048
  7. FOLIC ACID [Concomitant]
     Active Substance: FOLIC ACID
  8. BICTEGRAVIR\EMTRICITABINE\TENOFOVIR ALAFENAMIDE [Concomitant]
     Active Substance: BICTEGRAVIR\EMTRICITABINE\TENOFOVIR ALAFENAMIDE
     Route: 048
     Dates: start: 20220817
  9. CALCIUM\CHOLECALCIFEROL [Concomitant]
     Active Substance: CALCIUM\CHOLECALCIFEROL
  10. EZETIMIBE [Concomitant]
     Active Substance: EZETIMIBE
  11. EUTHYROX [Concomitant]
     Active Substance: LEVOTHYROXINE SODIUM
  12. METOPROLOL SUCCINATE [Concomitant]
     Active Substance: METOPROLOL SUCCINATE
  13. DAFALGAN [Concomitant]
     Active Substance: ACETAMINOPHEN
     Dosage: AS NECESSARY
     Route: 048
  14. JULUCA [Concomitant]
     Active Substance: DOLUTEGRAVIR SODIUM\RILPIVIRINE HYDROCHLORIDE
     Route: 048
     Dates: end: 20220816
  15. AUGMENTIN [Concomitant]
     Active Substance: AMOXICILLIN\CLAVULANATE POTASSIUM
     Dates: start: 20220711, end: 20220719
  16. ATORVASTATIN [Concomitant]
     Active Substance: ATORVASTATIN
  17. REMDESIVIR [Concomitant]
     Active Substance: REMDESIVIR
  18. DEXAMETHASONE [Concomitant]
     Active Substance: DEXAMETHASONE
  19. PREDNISONE [Concomitant]
     Active Substance: PREDNISONE
  20. DIGOXIN [Concomitant]
     Active Substance: DIGOXIN

REACTIONS (2)
  - Leukopenia [Recovered/Resolved]
  - Agranulocytosis [Not Recovered/Not Resolved]

NARRATIVE: CASE EVENT DATE: 20220720
